FAERS Safety Report 9326302 (Version 4)
Quarter: 2013Q3

REPORT INFORMATION
  Report Type: Report from Study
  Country: ES (occurrence: ES)
  Receive Date: 20130604
  Receipt Date: 20130916
  Transmission Date: 20140515
  Serious: Yes (Other)
  Sender: FDA-Public Use
  Company Number: ES-009507513-1301ESP006322

PATIENT
  Age: 71 Year
  Sex: Female
  Weight: 52 kg

DRUGS (15)
  1. BOCEPREVIR [Suspect]
     Indication: CHRONIC HEPATITIS C
     Dosage: 2400 MG
     Route: 048
     Dates: start: 20121213, end: 20130529
  2. RIBAVIRIN [Suspect]
     Indication: CHRONIC HEPATITIS C
     Dosage: 600 MG, QD
     Route: 048
     Dates: start: 20121115, end: 20121129
  3. RIBAVIRIN [Suspect]
     Dosage: 800 MG, QD
     Route: 048
     Dates: start: 20121130, end: 20121226
  4. RIBAVIRIN [Suspect]
     Dosage: 600 MG, QD
     Route: 048
     Dates: start: 20121227
  5. RIBAVIRIN [Suspect]
     Dosage: 400 MG, QD
     Route: 048
     Dates: start: 20130501
  6. RIBAVIRIN [Suspect]
     Dosage: 800 MG,DAILY
     Route: 048
     Dates: start: 20130903
  7. PEGINTERFERON ALFA-2A [Suspect]
     Indication: CHRONIC HEPATITIS C
     Dosage: 180 MICROGRAM, QW
     Route: 058
     Dates: start: 20121115
  8. PEGINTERFERON ALFA-2A [Suspect]
     Dosage: 90 MICROGRAM, QW
     Route: 058
     Dates: start: 20130502
  9. METFORMIN HYDROCHLORIDE [Concomitant]
     Dosage: 1700 MG, UNK
     Dates: start: 20121007
  10. IRBESARTAN [Concomitant]
     Dosage: 150 MG, UNK
     Dates: start: 20120703
  11. AMLODIPINE [Concomitant]
     Dosage: 5 MG, UNK
     Dates: start: 20120801
  12. FERROUS SULFATE [Concomitant]
     Dosage: UNK MG, UNK
     Dates: start: 20120703
  13. NADOLOL [Concomitant]
     Dosage: 40 UNIT NOT REPORTED
     Dates: start: 20120222
  14. DEFERASIROX [Concomitant]
     Dosage: UNK MG, UNK
     Dates: start: 20130513
  15. FILGRASTIM [Concomitant]
     Dosage: UNK

REACTIONS (1)
  - Anaemia [Recovered/Resolved]
